FAERS Safety Report 12975640 (Version 1)
Quarter: 2016Q4

REPORT INFORMATION
  Report Type: Spontaneous
  Country: US (occurrence: US)
  Receive Date: 20161125
  Receipt Date: 20161125
  Transmission Date: 20170207
  Serious: Yes (Other)
  Sender: FDA-Public Use
  Company Number: US-ELI_LILLY_AND_COMPANY-US201611007761

PATIENT
  Sex: Female

DRUGS (1)
  1. FORTEO [Suspect]
     Active Substance: TERIPARATIDE
     Indication: OSTEOPOROSIS
     Dosage: UNK, UNKNOWN
     Route: 065
     Dates: start: 2014, end: 2015

REACTIONS (5)
  - Fall [Unknown]
  - Hip fracture [Unknown]
  - Wrist fracture [Recovered/Resolved]
  - Memory impairment [Unknown]
  - Loss of consciousness [Recovered/Resolved]

NARRATIVE: CASE EVENT DATE: 2014
